FAERS Safety Report 22059372 (Version 1)
Quarter: 2023Q1

REPORT INFORMATION
  Report Type: Spontaneous
  Country: US (occurrence: None)
  Receive Date: 20230302
  Receipt Date: 20230302
  Transmission Date: 20230417
  Serious: Yes (Death, Hospitalization)
  Sender: FDA-Public Use
  Company Number: None

PATIENT
  Age: 50 Year
  Sex: Male

DRUGS (8)
  1. TADALAFIL [Suspect]
     Active Substance: TADALAFIL
     Indication: Pulmonary arterial hypertension
     Dosage: 20MG QD ORAL?
     Route: 048
     Dates: start: 20221114, end: 20230101
  2. LEVOTHYROXINE [Concomitant]
     Active Substance: LEVOTHYROXINE
  3. SPIRONOLACTONE [Concomitant]
     Active Substance: SPIRONOLACTONE
  4. FAMOTIDINE [Concomitant]
     Active Substance: FAMOTIDINE
  5. FUROSEMIDE [Concomitant]
     Active Substance: FUROSEMIDE
  6. ALBUTEROL SULFATE [Concomitant]
     Active Substance: ALBUTEROL SULFATE
  7. Alvesco HFA [Concomitant]
  8. THIAMINE HYDROCHLORIDE [Concomitant]
     Active Substance: THIAMINE HYDROCHLORIDE

REACTIONS (6)
  - Haematochezia [None]
  - Fatigue [None]
  - Asthenia [None]
  - Oedema peripheral [None]
  - Hyponatraemia [None]
  - Acute respiratory failure [None]

NARRATIVE: CASE EVENT DATE: 20221226
